FAERS Safety Report 4551671-0 (Version None)
Quarter: 2005Q1

REPORT INFORMATION
  Report Type: 
  Country: None (occurrence: None)
  Receive Date: 20050112
  Receipt Date: 20041217
  Transmission Date: 20050727
  Serious: Yes (Death)
  Sender: FDA-Public Use
  Company Number: 2004UW25875

PATIENT
  Weight: 68.0396 kg

DRUGS (1)
  1. SEROQUEL [Suspect]

REACTIONS (1)
  - ACCIDENTAL OVERDOSE [None]
